FAERS Safety Report 5565255-9 (Version None)
Quarter: 2007Q4

REPORT INFORMATION
  Report Type: 
  Country: None (occurrence: None)
  Receive Date: 20071218
  Receipt Date: 20071210
  Transmission Date: 20080405
  Serious: Yes (Other)
  Sender: FDA-Public Use
  Company Number: US-AMGEN-KDL254130

PATIENT
  Sex: Female

DRUGS (6)
  1. ENBREL [Suspect]
     Indication: PSORIATIC ARTHROPATHY
     Route: 058
     Dates: start: 20061002, end: 20070808
  2. ENBREL [Suspect]
     Indication: PSORIASIS
  3. NORVASC [Concomitant]
     Route: 065
  4. HYDROCHLOROTHIAZIDE [Concomitant]
     Route: 065
  5. MOTRIN [Concomitant]
     Route: 065
  6. FISH OIL [Concomitant]
     Route: 065

REACTIONS (1)
  - TUBERCULOSIS [None]
